FAERS Safety Report 9404389 (Version 1)
Quarter: 2013Q3

REPORT INFORMATION
  Report Type: Spontaneous
  Country: US (occurrence: US)
  Receive Date: 20130717
  Receipt Date: 20130717
  Transmission Date: 20140515
  Serious: Yes (Hospitalization, Other)
  Sender: FDA-Public Use
  Company Number: US-UCBSA-087015

PATIENT
  Age: 27 Year
  Sex: Male

DRUGS (2)
  1. CIMZIA [Suspect]
     Dates: start: 201101
  2. CIMZIA [Suspect]
     Indication: CROHN^S DISEASE
     Dates: start: 201101

REACTIONS (4)
  - Surgery [Not Recovered/Not Resolved]
  - Crohn^s disease [Unknown]
  - Abdominal pain [Unknown]
  - Nausea [Unknown]
